FAERS Safety Report 16277621 (Version 3)
Quarter: 2019Q2

REPORT INFORMATION
  Report Type: Spontaneous
  Country: US (occurrence: US)
  Receive Date: 20190506
  Receipt Date: 20190624
  Transmission Date: 20190711
  Serious: Yes (Hospitalization, Other)
  Sender: FDA-Public Use
  Company Number: US-PFIZER INC-2019190929

PATIENT
  Age: 63 Year
  Sex: Male
  Weight: 98.88 kg

DRUGS (1)
  1. VIAGRA [Suspect]
     Active Substance: SILDENAFIL CITRATE
     Indication: ANDROGEN DEFICIENCY
     Dosage: 100 MG, 1X/DAY
     Route: 048

REACTIONS (6)
  - Peripheral ischaemia [Unknown]
  - Cerebrovascular accident [Unknown]
  - Product use in unapproved indication [Unknown]
  - Off label use [Unknown]
  - Memory impairment [Unknown]
  - Thinking abnormal [Unknown]

NARRATIVE: CASE EVENT DATE: 2017
